FAERS Safety Report 19065872 (Version 1)
Quarter: 2021Q1

REPORT INFORMATION
  Report Type: Report from Study
  Country: US (occurrence: US)
  Receive Date: 20210327
  Receipt Date: 20210327
  Transmission Date: 20210420
  Serious: Yes (Other)
  Sender: FDA-Public Use
  Company Number: US-EXELIXIS-XL18421038722

PATIENT
  Age: 77 Year
  Sex: Male
  Weight: 89.17 kg

DRUGS (4)
  1. XL184 [Suspect]
     Active Substance: CABOZANTINIB
     Indication: TRANSITIONAL CELL CARCINOMA
     Dosage: 40 MG, QD
     Route: 048
     Dates: start: 20201119, end: 20210311
  2. NIVOLUMAB [Suspect]
     Active Substance: NIVOLUMAB
     Dosage: 480 MG ON DAY 1 (CYCLE 5+)
     Route: 042
  3. NIVOLUMAB [Suspect]
     Active Substance: NIVOLUMAB
     Indication: TRANSITIONAL CELL CARCINOMA
     Dosage: 3 MG/KG ON DAY1 (CYCLE 1?4)
     Route: 042
     Dates: start: 20201119
  4. IPILIMUMAB [Suspect]
     Active Substance: IPILIMUMAB
     Indication: TRANSITIONAL CELL CARCINOMA
     Dosage: 1 MG/KG ON DAY 1 (CYCLE 1?4)
     Route: 042
     Dates: start: 20201119

REACTIONS (1)
  - Lipase increased [Not Recovered/Not Resolved]

NARRATIVE: CASE EVENT DATE: 20210311
